FAERS Safety Report 20494235 (Version 1)
Quarter: 2022Q1

REPORT INFORMATION
  Report Type: Other
  Country: GB (occurrence: GB)
  Receive Date: 20220221
  Receipt Date: 20220221
  Transmission Date: 20220423
  Serious: Yes (Hospitalization, Other)
  Sender: FDA-Public Use
  Company Number: GB-RP-022328

PATIENT

DRUGS (1)
  1. DEXAMETHASONE [Suspect]
     Active Substance: DEXAMETHASONE
     Indication: COVID-19 pneumonia
     Dosage: UNK
     Route: 065

REACTIONS (3)
  - Off label use [Unknown]
  - Hyperglycaemia [Not Recovered/Not Resolved]
  - Hyperglycaemic hyperosmolar nonketotic syndrome [Not Recovered/Not Resolved]
